FAERS Safety Report 4528324-8 (Version None)
Quarter: 2004Q4

REPORT INFORMATION
  Report Type: 
  Country: None (occurrence: None)
  Receive Date: 20041130
  Receipt Date: 20040923
  Transmission Date: 20050328
  Serious: Yes (Disabling)
  Sender: FDA-Public Use
  Company Number: WAES 0409USA02068

PATIENT
  Age: 58 Year
  Sex: Female

DRUGS (3)
  1. ZETIA [Suspect]
     Indication: BLOOD CHOLESTEROL INCREASED
     Dosage: DAILY PO
     Route: 048
     Dates: start: 20040101, end: 20040101
  2. ZETIA [Suspect]
     Indication: BLOOD CHOLESTEROL INCREASED
     Dosage: DAILY PO
     Route: 048
     Dates: start: 20040101, end: 20040113
  3. ESTROGENS [Concomitant]

REACTIONS (2)
  - FATIGUE [None]
  - MEDICATION ERROR [None]
